FAERS Safety Report 7725169-2 (Version None)
Quarter: 2011Q3

REPORT INFORMATION
  Report Type: 
  Country: None (occurrence: None)
  Receive Date: 20110901
  Receipt Date: 20110726
  Transmission Date: 20111222
  Serious: Yes (Hospitalization, Other)
  Sender: FDA-Public Use
  Company Number: FR-MERCK-1103FRA00170

PATIENT
  Age: 84 Year
  Sex: Male
  Weight: 84 kg

DRUGS (10)
  1. JANUMET [Suspect]
     Indication: TYPE 2 DIABETES MELLITUS
     Route: 048
     Dates: start: 20100528, end: 20101201
  2. REPAGLINIDE [Concomitant]
     Route: 048
     Dates: start: 20100902, end: 20101126
  3. JANUMET [Suspect]
     Route: 048
     Dates: start: 20110607
  4. REPAGLINIDE [Concomitant]
     Route: 048
     Dates: start: 20101126, end: 20101215
  5. CLOPIDOGREL BISULFATE [Concomitant]
     Indication: MYOCARDIAL INFARCTION
     Route: 048
     Dates: start: 20061018
  6. HYDROCHLOROTHIAZIDE AND TRIAMTERENE [Concomitant]
     Indication: HYPERTENSION
     Route: 048
     Dates: start: 20061018
  7. REPAGLINIDE [Concomitant]
     Indication: TYPE 2 DIABETES MELLITUS
     Route: 048
     Dates: start: 20100528, end: 20100901
  8. AMLODIPINE BESYLATE [Concomitant]
     Indication: HYPERTENSION
     Route: 048
     Dates: start: 20061018
  9. ASPIRIN LYSINE [Concomitant]
     Indication: MYOCARDIAL INFARCTION
     Route: 048
     Dates: start: 20061018
  10. METOPROLOL TARTRATE [Concomitant]
     Indication: HYPERTENSION
     Route: 048
     Dates: start: 20061018

REACTIONS (1)
  - COLON CANCER RECURRENT [None]
